FAERS Safety Report 7480818-1 (Version None)
Quarter: 2011Q2

REPORT INFORMATION
  Report Type: 
  Country: None (occurrence: None)
  Receive Date: 20110516
  Receipt Date: 20110404
  Transmission Date: 20111010
  Serious: Yes (Other)
  Sender: FDA-Public Use
  Company Number: US-BAYER-201037140NA

PATIENT
  Age: 40 Year
  Sex: Female
  Weight: 61.224 kg

DRUGS (5)
  1. YAZ [Suspect]
     Indication: PREMENSTRUAL SYNDROME
  2. MULTI-VITAMIN [Concomitant]
     Dosage: UNK UNK, QD
  3. YAZ [Suspect]
     Indication: ORAL CONTRACEPTION
     Dosage: 1 DF, QD
     Route: 048
     Dates: start: 20070701, end: 20080403
  4. YAZ [Suspect]
  5. ZOLOFT [Concomitant]
     Dosage: UNK
     Dates: start: 20000101

REACTIONS (5)
  - ISCHAEMIC CEREBRAL INFARCTION [None]
  - AMNESIA [None]
  - COGNITIVE DISORDER [None]
  - PAIN [None]
  - BLINDNESS [None]
